FAERS Safety Report 8430762-8 (Version None)
Quarter: 2012Q2

REPORT INFORMATION
  Report Type: 
  Country: None (occurrence: None)
  Receive Date: 20120612
  Receipt Date: 20120604
  Transmission Date: 20120825
  Serious: Yes (Hospitalization, Other)
  Sender: FDA-Public Use
  Company Number: ES-ELI_LILLY_AND_COMPANY-ES201206001031

PATIENT
  Sex: Female

DRUGS (1)
  1. FORTEO [Suspect]
     Dosage: UNK
     Dates: start: 20120522

REACTIONS (3)
  - WOUND HAEMORRHAGE [None]
  - SURGERY [None]
  - POSTOPERATIVE WOUND INFECTION [None]
